FAERS Safety Report 8257937 (Version 5)
Quarter: 2013Q1

REPORT INFORMATION
  Report Type: Spontaneous
  Country: US (occurrence: US)
  Receive Date: 20111121
  Receipt Date: 20130306
  Transmission Date: 20140127
  Serious: Yes (Hospitalization, Other)
  Sender: FDA-Public Use
  Company Number: US-ASTRAZENECA-2011SE68417

PATIENT
  Age: 54 Year
  Sex: Female

DRUGS (3)
  1. SYMBICORT PMDI [Suspect]
     Dosage: UNKNOWN
     Route: 055
  2. NEXIUM [Suspect]
     Route: 048
  3. COUMADIN [Suspect]
     Route: 065

REACTIONS (9)
  - Cardiac disorder [Unknown]
  - Incorrect dose administered [Unknown]
  - Cerebrovascular accident [Unknown]
  - Diabetes mellitus [Unknown]
  - Gastrooesophageal reflux disease [Unknown]
  - Visual acuity reduced [Unknown]
  - Choking sensation [Unknown]
  - Depression [Unknown]
  - Drug dose omission [Unknown]
